FAERS Safety Report 6327814-5 (Version None)
Quarter: 2009Q3

REPORT INFORMATION
  Report Type: 
  Country: None (occurrence: None)
  Receive Date: 20090824
  Receipt Date: 20090819
  Transmission Date: 20100115
  Serious: Yes (Other)
  Sender: FDA-Public Use
  Company Number: 1000007607

PATIENT
  Age: 38 Year
  Sex: Female
  Weight: 133 kg

DRUGS (2)
  1. THYROID TAB [Suspect]
     Indication: HYPOTHYROIDISM
     Dosage: 180 MG (180 MG, 1 IN 1 D),SUBLINGUAL
     Route: 060
     Dates: start: 20070701
  2. CORTISOL [Concomitant]

REACTIONS (10)
  - ABORTION SPONTANEOUS [None]
  - ALOPECIA [None]
  - COUGH [None]
  - DRUG EXPOSURE DURING PREGNANCY [None]
  - DRY SKIN [None]
  - FATIGUE [None]
  - PERIPHERAL COLDNESS [None]
  - PREGNANCY [None]
  - RASH [None]
  - WEIGHT INCREASED [None]
